FAERS Safety Report 10678417 (Version 1)
Quarter: 2014Q4

REPORT INFORMATION
  Report Type: Spontaneous
  Country: US (occurrence: None)
  Receive Date: 20141223
  Receipt Date: 20141223
  Transmission Date: 20150529
  Serious: Yes (Other)
  Sender: FDA-Public Use
  Company Number: 2014HINSPO1082

PATIENT
  Sex: Female

DRUGS (2)
  1. ACYCLOVIR (ACYCLOVIR) TABLET, 800MG [Suspect]
     Active Substance: ACYCLOVIR
     Indication: HERPES ZOSTER
  2. PREDNISONE (PREDNISONE) [Suspect]
     Active Substance: PREDNISONE
     Indication: HERPES ZOSTER
     Route: 048

REACTIONS (1)
  - Abdominal pain upper [None]
